FAERS Safety Report 17017670 (Version 7)
Quarter: 2023Q2

REPORT INFORMATION
  Report Type: Spontaneous
  Country: ES (occurrence: ES)
  Receive Date: 20191111
  Receipt Date: 20230508
  Transmission Date: 20230721
  Serious: Yes (Other)
  Sender: FDA-Public Use
  Company Number: ES-BRISTOL-MYERS SQUIBB COMPANY-BMS-2019-081449

PATIENT

DRUGS (8)
  1. EFAVIRENZ [Interacting]
     Active Substance: EFAVIRENZ
     Indication: Antiretroviral therapy
     Dosage: UNK
     Route: 048
     Dates: start: 2008
  2. EFAVIRENZ [Interacting]
     Active Substance: EFAVIRENZ
     Indication: HIV infection
  3. RITONAVIR [Interacting]
     Active Substance: RITONAVIR
     Indication: HIV infection
     Dosage: UNK
     Dates: start: 2008
  4. LOPINAVIR [Interacting]
     Active Substance: LOPINAVIR
     Indication: HIV infection
     Dosage: UNK
     Dates: start: 2008
  5. TENOFOVIR [Interacting]
     Active Substance: TENOFOVIR
     Indication: Antiretroviral therapy
     Dosage: UNK
     Dates: start: 2008
  6. TENOFOVIR [Interacting]
     Active Substance: TENOFOVIR
     Indication: HIV infection
  7. EMTRICITABINE [Interacting]
     Active Substance: EMTRICITABINE
     Indication: Antiretroviral therapy
     Dosage: UNK
     Dates: start: 2008
  8. EMTRICITABINE [Interacting]
     Active Substance: EMTRICITABINE
     Indication: HIV infection

REACTIONS (4)
  - Hepatotoxicity [Recovered/Resolved]
  - Neurotoxicity [Recovered/Resolved]
  - Drug interaction [Unknown]
  - Disseminated tuberculosis [Unknown]
